FAERS Safety Report 9742619 (Version 1)
Quarter: 2013Q4

REPORT INFORMATION
  Report Type: Spontaneous
  Country: US (occurrence: US)
  Receive Date: 20131210
  Receipt Date: 20131210
  Transmission Date: 20140711
  Serious: No
  Sender: FDA-Public Use
  Company Number: US-GILEAD-2009-0024790

PATIENT
  Age: 50 Year
  Sex: Female

DRUGS (13)
  1. LETAIRIS [Suspect]
     Indication: PULMONARY ARTERIAL HYPERTENSION
     Route: 048
     Dates: start: 20080310
  2. REVATIO [Concomitant]
  3. FUROSEMIDE [Concomitant]
  4. DILTIAZEM [Concomitant]
  5. COREG [Concomitant]
  6. GEMFIBROZIL [Concomitant]
  7. GLYBURIDE [Concomitant]
  8. SEROQUEL [Concomitant]
  9. DARVOCET [Concomitant]
  10. PROZAC [Concomitant]
  11. SOMA [Concomitant]
  12. POTASSIUM [Concomitant]
  13. PRILOSEC [Concomitant]

REACTIONS (3)
  - Dizziness [Not Recovered/Not Resolved]
  - Feeling abnormal [Not Recovered/Not Resolved]
  - Local swelling [Unknown]
